FAERS Safety Report 8794967 (Version 3)
Quarter: 2014Q1

REPORT INFORMATION
  Report Type: Spontaneous
  Country: CA (occurrence: CA)
  Receive Date: 20120917
  Receipt Date: 20140214
  Transmission Date: 20141002
  Serious: Yes (Death)
  Sender: FDA-Public Use
  Company Number: CA-SHIRE-ALL1-2012-04390

PATIENT
  Age: 50 Year
  Sex: Male
  Weight: 88.44 kg

DRUGS (1)
  1. MEZAVANT [Suspect]
     Indication: CROHN^S DISEASE
     Dosage: 1.2 G, UNKNOWN
     Route: 048

REACTIONS (2)
  - Myocarditis [Fatal]
  - Off label use [Unknown]
